FAERS Safety Report 10486314 (Version 11)
Quarter: 2017Q1

REPORT INFORMATION
  Report Type: Report from Study
  Country: LB (occurrence: LB)
  Receive Date: 20141001
  Receipt Date: 20170126
  Transmission Date: 20170428
  Serious: Yes (Other)
  Sender: FDA-Public Use
  Company Number: PHHY2014LB051040

PATIENT
  Age: 39 Year
  Sex: Male

DRUGS (3)
  1. TASIGNA [Suspect]
     Active Substance: NILOTINIB
     Indication: PRODUCT USED FOR UNKNOWN INDICATION
     Dosage: 600 MG, QD
     Route: 048
     Dates: start: 20140417
  2. NEXIUM [Concomitant]
     Active Substance: ESOMEPRAZOLE MAGNESIUM
     Indication: PRODUCT USED FOR UNKNOWN INDICATION
     Dosage: 1 DF, QD
     Route: 048
     Dates: start: 201509
  3. ADVIL [Concomitant]
     Active Substance: IBUPROFEN
     Indication: PRODUCT USED FOR UNKNOWN INDICATION
     Dosage: UNK, PRN\SOS
     Route: 048

REACTIONS (15)
  - Granuloma skin [Recovering/Resolving]
  - Fatigue [Not Recovered/Not Resolved]
  - Abdominal pain upper [Recovered/Resolved]
  - Helicobacter infection [Unknown]
  - Abdominal pain [Recovering/Resolving]
  - Gastritis [Unknown]
  - Neck pain [Not Recovered/Not Resolved]
  - Cytogenetic analysis abnormal [Unknown]
  - Headache [Not Recovered/Not Resolved]
  - Exposure via father [Not Recovered/Not Resolved]
  - Vomiting [Recovered/Resolved]
  - Leukocytosis [Not Recovered/Not Resolved]
  - Sinusitis [Recovering/Resolving]
  - Intentional product misuse [Not Recovered/Not Resolved]
  - Dry skin [Recovering/Resolving]

NARRATIVE: CASE EVENT DATE: 20140422
